FAERS Safety Report 7948660-2 (Version None)
Quarter: 2011Q4

REPORT INFORMATION
  Report Type: 
  Country: None (occurrence: None)
  Receive Date: 20111130
  Receipt Date: 20111130
  Transmission Date: 20120403
  Serious: Yes (Hospitalization)
  Sender: FDA-Public Use
  Company Number: None

PATIENT
  Age: 85 Year
  Sex: Male
  Weight: 49.895 kg

DRUGS (2)
  1. LUPRON DEPOT [Suspect]
     Indication: PROSTATE CANCER
     Dosage: 2 SHOTS
     Route: 030
     Dates: start: 20110515, end: 20111015
  2. LUPRON DEPOT [Suspect]
     Indication: PROSTATIC SPECIFIC ANTIGEN INCREASED
     Dosage: 2 SHOTS
     Route: 030
     Dates: start: 20110515, end: 20111015

REACTIONS (13)
  - FATIGUE [None]
  - DIZZINESS [None]
  - ABDOMINAL DISTENSION [None]
  - ANAEMIA [None]
  - OEDEMA [None]
  - PNEUMONIA [None]
  - HYPOAESTHESIA [None]
  - OEDEMA PERIPHERAL [None]
  - MUSCLE ATROPHY [None]
  - ASTHENIA [None]
  - FLUSHING [None]
  - MUSCLE MASS [None]
  - EYELID PTOSIS [None]
